FAERS Safety Report 17560473 (Version 4)
Quarter: 2021Q1

REPORT INFORMATION
  Report Type: Report from Study
  Country: AU (occurrence: AU)
  Receive Date: 20200319
  Receipt Date: 20210113
  Transmission Date: 20210419
  Serious: No
  Sender: FDA-Public Use
  Company Number: AU-BRISTOL-MYERS SQUIBB COMPANY-BMS-2019-119831

PATIENT
  Age: 56 Year
  Sex: Male
  Weight: 54.56 kg

DRUGS (66)
  1. NIVOLUMAB [Suspect]
     Active Substance: NIVOLUMAB
     Indication: MALIGNANT MELANOMA
     Dosage: 171 ABSENT
     Route: 065
     Dates: start: 20161208
  2. NIVOLUMAB [Suspect]
     Active Substance: NIVOLUMAB
     Dosage: 158 ABSENT
     Route: 065
     Dates: start: 20170124, end: 20170207
  3. NIVOLUMAB [Suspect]
     Active Substance: NIVOLUMAB
     Dosage: 158 ABSENT
     Route: 065
     Dates: start: 20170321
  4. NIVOLUMAB [Suspect]
     Active Substance: NIVOLUMAB
     Dosage: 159 ABSENT
     Route: 065
     Dates: start: 20170627
  5. NIVOLUMAB [Suspect]
     Active Substance: NIVOLUMAB
     Dosage: 160 ABSENT
     Route: 065
     Dates: start: 20180123
  6. NIVOLUMAB [Suspect]
     Active Substance: NIVOLUMAB
     Dosage: 154 ABSENT
     Route: 065
     Dates: start: 20180703
  7. NIVOLUMAB [Suspect]
     Active Substance: NIVOLUMAB
     Dosage: 160 ABSENT, Q2WK
     Route: 065
     Dates: start: 20170404, end: 20170502
  8. NIVOLUMAB [Suspect]
     Active Substance: NIVOLUMAB
     Dosage: 159 ABSENT
     Route: 065
     Dates: start: 20180403
  9. NIVOLUMAB [Suspect]
     Active Substance: NIVOLUMAB
     Dosage: 152 ABSENT
     Route: 065
     Dates: start: 20180515
  10. NIVOLUMAB [Suspect]
     Active Substance: NIVOLUMAB
     Dosage: 167 ABSENT
     Route: 065
     Dates: start: 20180925
  11. NIVOLUMAB [Suspect]
     Active Substance: NIVOLUMAB
     Dosage: 164 ABSENT
     Route: 065
     Dates: start: 20181009, end: 20181023
  12. TARGIN [Concomitant]
     Active Substance: NALOXONE HYDROCHLORIDE\OXYCODONE HYDROCHLORIDE
     Dosage: 60 MILLIGRAM, BID
     Route: 048
     Dates: start: 20190909
  13. NIVOLUMAB [Suspect]
     Active Substance: NIVOLUMAB
     Dosage: 166 ABSENT
     Route: 065
     Dates: start: 20170808
  14. NIVOLUMAB [Suspect]
     Active Substance: NIVOLUMAB
     Dosage: 160 ABSENT
     Route: 065
     Dates: start: 20171219
  15. NIVOLUMAB [Suspect]
     Active Substance: NIVOLUMAB
     Dosage: 157 ABSENT
     Route: 065
     Dates: start: 20180320
  16. NIVOLUMAB [Suspect]
     Active Substance: NIVOLUMAB
     Dosage: 164 ABSENT
     Route: 065
     Dates: start: 20180717
  17. NIVOLUMAB [Suspect]
     Active Substance: NIVOLUMAB
     Dosage: 173 ABSENT, Q2WK
     Route: 065
     Dates: start: 20180731, end: 20180814
  18. NIVOLUMAB [Suspect]
     Active Substance: NIVOLUMAB
     Dosage: 164 ABSENT
     Route: 065
     Dates: start: 20180828
  19. NIVOLUMAB [Suspect]
     Active Substance: NIVOLUMAB
     Dosage: 169 ABSENT
     Route: 065
     Dates: start: 20190806, end: 20190903
  20. CEFUROXIME. [Concomitant]
     Active Substance: CEFUROXIME
     Indication: LOWER RESPIRATORY TRACT INFECTION
     Dosage: 250 MILLIGRAM, BID
     Route: 048
     Dates: start: 20190819
  21. JURNISTA [Concomitant]
     Active Substance: HYDROMORPHONE HYDROCHLORIDE
     Indication: PRODUCT USED FOR UNKNOWN INDICATION
     Dosage: 4 MILLIGRAM, PRN
     Route: 048
     Dates: start: 20191014, end: 20191111
  22. NIVOLUMAB [Suspect]
     Active Substance: NIVOLUMAB
     Dosage: 164 ABSENT
     Route: 065
     Dates: start: 20170829
  23. NIVOLUMAB [Suspect]
     Active Substance: NIVOLUMAB
     Dosage: 168 ABSENT
     Route: 065
     Dates: start: 20170912
  24. NIVOLUMAB [Suspect]
     Active Substance: NIVOLUMAB
     Dosage: 167 ABSENT
     Route: 065
     Dates: start: 20170926, end: 20171010
  25. NIVOLUMAB [Suspect]
     Active Substance: NIVOLUMAB
     Dosage: 160 ABSENT
     Route: 065
     Dates: start: 20180417
  26. NIVOLUMAB [Suspect]
     Active Substance: NIVOLUMAB
     Dosage: 170 ABSENT
     Route: 065
     Dates: start: 20190326
  27. NIVOLUMAB [Suspect]
     Active Substance: NIVOLUMAB
     Dosage: 162 ABSENT
     Route: 065
     Dates: start: 20190423, end: 20190506
  28. RANITIDINE. [Concomitant]
     Active Substance: RANITIDINE
     Indication: GASTROOESOPHAGEAL REFLUX DISEASE
     Dosage: 300 MILLIGRAM, NOCTRE AS DIRECTED
     Route: 048
     Dates: end: 20180810
  29. LYRICA [Concomitant]
     Active Substance: PREGABALIN
     Indication: NEURALGIA
     Dosage: 300 MILLIGRAM, BID
     Route: 048
     Dates: start: 20190909, end: 201911
  30. NIVOLUMAB [Suspect]
     Active Substance: NIVOLUMAB
     Dosage: 161 ABSENT
     Route: 065
     Dates: start: 20170516
  31. NIVOLUMAB [Suspect]
     Active Substance: NIVOLUMAB
     Dosage: 160 ABSENT
     Route: 065
     Dates: start: 20170530
  32. NIVOLUMAB [Suspect]
     Active Substance: NIVOLUMAB
     Dosage: 154 ABSENT
     Route: 065
     Dates: start: 20180501
  33. SPIOLTO RESPIMAT [Concomitant]
     Active Substance: OLODATEROL HYDROCHLORIDE\TIOTROPIUM BROMIDE MONOHYDRATE
     Indication: CHRONIC OBSTRUCTIVE PULMONARY DISEASE
     Dosage: 5 MICROGRAM, DAILY
     Route: 050
     Dates: start: 20150516
  34. SEREPAX [Concomitant]
     Active Substance: OXAZEPAM
     Indication: SEDATION
     Dosage: 30 MILLIGRAM, QD
     Route: 048
     Dates: start: 20191208, end: 20191222
  35. NIVOLUMAB [Suspect]
     Active Substance: NIVOLUMAB
     Dosage: 160 ABSENT
     Route: 065
     Dates: start: 20170711, end: 20190725
  36. NIVOLUMAB [Suspect]
     Active Substance: NIVOLUMAB
     Dosage: 165 ABSENT, Q2WK
     Route: 065
     Dates: start: 20171024, end: 20171121
  37. NIVOLUMAB [Suspect]
     Active Substance: NIVOLUMAB
     Dosage: 164 ABSENT
     Route: 065
     Dates: start: 20171205
  38. NIVOLUMAB [Suspect]
     Active Substance: NIVOLUMAB
     Dosage: 160 ABSENT
     Route: 065
     Dates: start: 20180105
  39. NIVOLUMAB [Suspect]
     Active Substance: NIVOLUMAB
     Dosage: 156 ABSENT
     Route: 065
     Dates: start: 20180220, end: 20180306
  40. NIVOLUMAB [Suspect]
     Active Substance: NIVOLUMAB
     Dosage: 166 ABSENT
     Route: 065
     Dates: start: 20190312
  41. NIVOLUMAB [Suspect]
     Active Substance: NIVOLUMAB
     Dosage: 176 ABSENT
     Route: 065
     Dates: start: 20190604
  42. NIVOLUMAB [Suspect]
     Active Substance: NIVOLUMAB
     Dosage: 174 ABSENT
     Route: 065
     Dates: start: 20190708, end: 20190725
  43. NIVOLUMAB [Suspect]
     Active Substance: NIVOLUMAB
     Dosage: 480 ABSENT, Q4WK
     Route: 065
     Dates: start: 20190916, end: 20191111
  44. NIVOLUMAB [Suspect]
     Active Substance: NIVOLUMAB
     Dosage: 480 ABSENT
     Route: 065
     Dates: start: 20191216
  45. TARGIN [Concomitant]
     Active Substance: NALOXONE HYDROCHLORIDE\OXYCODONE HYDROCHLORIDE
     Indication: BONE PAIN
     Dosage: 40 MILLIGRAM, BID
     Route: 048
     Dates: start: 20160812, end: 20190909
  46. LYRICA [Concomitant]
     Active Substance: PREGABALIN
     Dosage: 400 MILLIGRAM, BID
     Route: 048
     Dates: start: 201911
  47. ENDONE [Concomitant]
     Active Substance: OXYCODONE HYDROCHLORIDE
     Indication: BACK PAIN
     Dosage: 10 MILLIGRAM, AS NEEDED
     Route: 048
     Dates: start: 2016
  48. OXYTOCIN. [Concomitant]
     Active Substance: OXYTOCIN
     Indication: PRODUCT USED FOR UNKNOWN INDICATION
     Dosage: 20 MILLIGRAM, PRN
     Route: 048
     Dates: start: 20160906, end: 20170516
  49. NIVOLUMAB [Suspect]
     Active Substance: NIVOLUMAB
     Dosage: 154 ABSENT
     Route: 065
     Dates: start: 20180529, end: 20180620
  50. NIVOLUMAB [Suspect]
     Active Substance: NIVOLUMAB
     Dosage: 162 ABSENT
     Route: 065
     Dates: start: 20181121, end: 20181204
  51. NIVOLUMAB [Suspect]
     Active Substance: NIVOLUMAB
     Dosage: 169 ABSENT
     Route: 065
     Dates: start: 20181218
  52. NIVOLUMAB [Suspect]
     Active Substance: NIVOLUMAB
     Dosage: 162 ABSENT
     Route: 065
     Dates: start: 20190212, end: 20190226
  53. NIVOLUMAB [Suspect]
     Active Substance: NIVOLUMAB
     Dosage: 172 ABSENT
     Route: 065
     Dates: start: 20190409
  54. VENTOLIN [Concomitant]
     Active Substance: ALBUTEROL SULFATE
     Indication: CHRONIC OBSTRUCTIVE PULMONARY DISEASE
     Dosage: 100 MICROGRAM, AS NEEDED
     Route: 050
     Dates: start: 20150516
  55. MIRTAZAPINE. [Concomitant]
     Active Substance: MIRTAZAPINE
     Indication: DEPRESSION
     Dosage: 30 MILLIGRAM, NOCTE AS DIRECTED
     Route: 048
  56. NIVOLUMAB [Suspect]
     Active Substance: NIVOLUMAB
     Indication: LUNG NEOPLASM MALIGNANT
     Dosage: 164 ABSENT
     Route: 065
     Dates: start: 20161220, end: 20170106
  57. NIVOLUMAB [Suspect]
     Active Substance: NIVOLUMAB
     Dosage: 156 ABSENT
     Route: 065
     Dates: start: 20170221
  58. NIVOLUMAB [Suspect]
     Active Substance: NIVOLUMAB
     Dosage: 164 ABSENT
     Route: 065
     Dates: start: 20170614
  59. NIVOLUMAB [Suspect]
     Active Substance: NIVOLUMAB
     Dosage: 160 ABSENT
     Route: 065
     Dates: start: 20180206
  60. NIVOLUMAB [Suspect]
     Active Substance: NIVOLUMAB
     Dosage: 166 ABSENT
     Route: 065
     Dates: start: 20180911
  61. NIVOLUMAB [Suspect]
     Active Substance: NIVOLUMAB
     Dosage: 164 ABSENT
     Route: 065
     Dates: start: 20190109
  62. NIVOLUMAB [Suspect]
     Active Substance: NIVOLUMAB
     Dosage: 162 ABSENT
     Route: 065
     Dates: start: 20190521
  63. NIVOLUMAB [Suspect]
     Active Substance: NIVOLUMAB
     Dosage: 162 ABSENT
     Route: 065
     Dates: start: 20190618
  64. CIPROFLOXACIN. [Concomitant]
     Active Substance: CIPROFLOXACIN
     Indication: PSEUDOMONAS TEST POSITIVE
     Dosage: 500 MILLIGRAM, BID
     Route: 048
     Dates: start: 20181218
  65. PREDNISOLONE. [Concomitant]
     Active Substance: PREDNISOLONE
     Indication: INFLAMMATION
     Dosage: 25 MILLIGRAM, DAILY
     Route: 048
     Dates: start: 20190819
  66. HYDROMORPHONE [Concomitant]
     Active Substance: HYDROMORPHONE
     Indication: PRODUCT USED FOR UNKNOWN INDICATION
     Dosage: 8 MILLIGRAM, QID
     Route: 048
     Dates: start: 20191111

REACTIONS (1)
  - Pain [Unknown]

NARRATIVE: CASE EVENT DATE: 20190708
